FAERS Safety Report 7753497-3 (Version None)
Quarter: 2011Q3

REPORT INFORMATION
  Report Type: 
  Country: None (occurrence: None)
  Receive Date: 20110915
  Receipt Date: 20110902
  Transmission Date: 20111222
  Serious: Yes (Hospitalization)
  Sender: FDA-Public Use
  Company Number: US-BAYER-2011-083891

PATIENT
  Age: 78 Year
  Sex: Female

DRUGS (5)
  1. SAXAGLIPTIN [Suspect]
     Indication: TYPE 2 DIABETES MELLITUS
     Dosage: UNK
     Dates: start: 20110523
  2. GLIMEPIRIDE [Suspect]
     Indication: DIABETES MELLITUS
     Dosage: DAILY DOSE 4 MG
  3. ASPIRIN [Suspect]
     Dosage: DAILY DOSE 1 DF
  4. ACARBOSE [Suspect]
     Dosage: DAILY DOSE 300 MG
  5. PLAVIX [Suspect]

REACTIONS (5)
  - NAUSEA [None]
  - HAEMOGLOBIN DECREASED [None]
  - GASTROINTESTINAL HAEMORRHAGE [None]
  - HAEMATOCHEZIA [None]
  - GASTRITIS EROSIVE [None]
